FAERS Safety Report 5241690-3 (Version None)
Quarter: 2007Q1

REPORT INFORMATION
  Report Type: 
  Country: None (occurrence: None)
  Receive Date: 20070220
  Receipt Date: 20070214
  Transmission Date: 20070707
  Serious: Yes (Other)
  Sender: FDA-Public Use
  Company Number: JP-BRISTOL-MYERS SQUIBB COMPANY-13678958

PATIENT
  Age: 73 Year
  Sex: Male

DRUGS (4)
  1. PARAPLATIN [Suspect]
     Indication: SMALL CELL LUNG CANCER STAGE UNSPECIFIED
     Route: 041
     Dates: start: 19940101, end: 19940101
  2. VEPESID [Suspect]
     Indication: SMALL CELL LUNG CANCER STAGE UNSPECIFIED
     Route: 041
     Dates: start: 19940101, end: 19940101
  3. BRIPLATIN [Suspect]
     Indication: METASTASES TO SPINE
     Route: 041
     Dates: start: 19950101
  4. IRINOTECAN HCL [Concomitant]
     Indication: METASTASES TO SPINE
     Dates: start: 19950101

REACTIONS (1)
  - LUNG SQUAMOUS CELL CARCINOMA STAGE UNSPECIFIED [None]
